FAERS Safety Report 15155963 (Version 1)
Quarter: 2018Q3

REPORT INFORMATION
  Report Type: Spontaneous
  Country: US (occurrence: US)
  Receive Date: 20180717
  Receipt Date: 20180717
  Transmission Date: 20181010
  Serious: Yes (Death, Life-Threatening, Hospitalization, Disabling)
  Sender: FDA-Public Use
  Company Number: US-US WORLDMEDS, LLC-STA_00020163

PATIENT
  Age: 85 Year
  Sex: Male

DRUGS (1)
  1. APOMORPHINE HYDROCHLORIDE [Suspect]
     Active Substance: APOMORPHINE HYDROCHLORIDE
     Indication: PRODUCT USED FOR UNKNOWN INDICATION
     Dosage: 4MG FOUR TIMES PER DAY AS NEEDED
     Route: 058
     Dates: start: 20090504, end: 20090609

REACTIONS (8)
  - Cardio-respiratory arrest [Fatal]
  - Lung infection [Unknown]
  - Lymphadenopathy mediastinal [Unknown]
  - Transient ischaemic attack [Recovering/Resolving]
  - Pneumonia aspiration [Unknown]
  - Hilar lymphadenopathy [Unknown]
  - Lung neoplasm malignant [Unknown]
  - Hiatus hernia [Unknown]

NARRATIVE: CASE EVENT DATE: 20090601
